FAERS Safety Report 24373158 (Version 1)
Quarter: 2024Q3

REPORT INFORMATION
  Report Type: Spontaneous
  Country: JP (occurrence: JP)
  Receive Date: 20240927
  Receipt Date: 20240927
  Transmission Date: 20241017
  Serious: Yes (Death, Hospitalization)
  Sender: DAIICHI
  Company Number: JP-DSJP-DSJ-2024-138929

PATIENT
  Age: 60 Year
  Sex: Female
  Weight: 38.6 kg

DRUGS (32)
  1. ENHERTU [Suspect]
     Active Substance: FAM-TRASTUZUMAB DERUXTECAN-NXKI
     Indication: HER2 low breast cancer
     Dosage: 5.4 MG/KG
     Route: 041
     Dates: start: 20230728, end: 20230728
  2. ENHERTU [Suspect]
     Active Substance: FAM-TRASTUZUMAB DERUXTECAN-NXKI
     Dosage: 5.4 MG/KG
     Route: 041
     Dates: start: 20230818, end: 20230818
  3. ENHERTU [Suspect]
     Active Substance: FAM-TRASTUZUMAB DERUXTECAN-NXKI
     Dosage: 5.4 MG/KG
     Route: 041
     Dates: start: 20230911, end: 20230911
  4. ENHERTU [Suspect]
     Active Substance: FAM-TRASTUZUMAB DERUXTECAN-NXKI
     Dosage: 5.4 MG/KG
     Route: 041
     Dates: start: 20231002, end: 20231002
  5. ENHERTU [Suspect]
     Active Substance: FAM-TRASTUZUMAB DERUXTECAN-NXKI
     Dosage: 5.4 MG/KG
     Route: 041
     Dates: start: 20231023, end: 20231023
  6. ENHERTU [Suspect]
     Active Substance: FAM-TRASTUZUMAB DERUXTECAN-NXKI
     Dosage: 5.4 MG/KG
     Route: 041
     Dates: start: 20231113, end: 20231113
  7. ENHERTU [Suspect]
     Active Substance: FAM-TRASTUZUMAB DERUXTECAN-NXKI
     Dosage: 5.4 MG/KG
     Route: 041
     Dates: start: 20231204, end: 20231204
  8. ENHERTU [Suspect]
     Active Substance: FAM-TRASTUZUMAB DERUXTECAN-NXKI
     Dosage: 5.4 MG/KG
     Route: 041
     Dates: start: 20240105, end: 20240105
  9. ENHERTU [Suspect]
     Active Substance: FAM-TRASTUZUMAB DERUXTECAN-NXKI
     Dosage: 5.4 MG/KG
     Route: 041
     Dates: start: 20240129, end: 20240129
  10. ENHERTU [Suspect]
     Active Substance: FAM-TRASTUZUMAB DERUXTECAN-NXKI
     Dosage: 5.4 MG/KG
     Route: 041
     Dates: start: 20240219, end: 20240219
  11. ENHERTU [Suspect]
     Active Substance: FAM-TRASTUZUMAB DERUXTECAN-NXKI
     Dosage: 5.4 MG/KG
     Route: 041
     Dates: start: 20240311, end: 20240311
  12. ENHERTU [Suspect]
     Active Substance: FAM-TRASTUZUMAB DERUXTECAN-NXKI
     Dosage: 5.4 MG/KG
     Route: 041
     Dates: start: 20240401, end: 20240401
  13. ENHERTU [Suspect]
     Active Substance: FAM-TRASTUZUMAB DERUXTECAN-NXKI
     Dosage: 5.4 MG/KG
     Route: 041
     Dates: start: 20240422, end: 20240422
  14. ENHERTU [Suspect]
     Active Substance: FAM-TRASTUZUMAB DERUXTECAN-NXKI
     Dosage: 5.4 MG/KG
     Route: 041
     Dates: start: 20240520, end: 20240520
  15. LOXOPROFEN SODIUM [Concomitant]
     Active Substance: LOXOPROFEN SODIUM
     Indication: Intervertebral disc protrusion
     Dosage: 60 MG, QD
     Route: 048
     Dates: end: 20230820
  16. LOXOPROFEN SODIUM [Concomitant]
     Active Substance: LOXOPROFEN SODIUM
     Dosage: 60 MG, BID
     Route: 048
     Dates: start: 20230821, end: 20230910
  17. REBAMIPIDE [Concomitant]
     Active Substance: REBAMIPIDE
     Indication: Intervertebral disc protrusion
     Dosage: 100 MG, QD
     Route: 048
     Dates: end: 20240619
  18. PREGABALIN [Concomitant]
     Active Substance: PREGABALIN
     Indication: Intervertebral disc protrusion
     Dosage: 50 MG, QD
     Route: 048
     Dates: start: 20230728, end: 20230910
  19. LANSOPRAZOLE [Concomitant]
     Active Substance: LANSOPRAZOLE
     Indication: Intervertebral disc protrusion
     Dosage: 15 MG, QD
     Route: 048
     Dates: start: 20230522, end: 20240804
  20. REBAMIPIDE [Concomitant]
     Active Substance: REBAMIPIDE
     Indication: Intervertebral disc protrusion
     Dosage: 100 MG, QD
     Route: 048
     Dates: start: 20230522, end: 20240115
  21. CHOREITOGOSHIMOTSUTO [Concomitant]
     Indication: Product used for unknown indication
     Dosage: 1 DF, BID
     Route: 048
     Dates: start: 20230522, end: 20240620
  22. LYRICA [Concomitant]
     Active Substance: PREGABALIN
     Indication: Intervertebral disc protrusion
     Dosage: 25 MG, QD
     Route: 048
     Dates: start: 20231127, end: 20240526
  23. LOXOPROFEN SODIUM [Concomitant]
     Active Substance: LOXOPROFEN SODIUM
     Indication: Intervertebral disc protrusion
     Dosage: UNK
     Dates: start: 2023
  24. LOXOPROFEN SODIUM [Concomitant]
     Active Substance: LOXOPROFEN SODIUM
     Indication: Intervertebral disc protrusion
     Dosage: 60 MG, QD
     Route: 048
     Dates: start: 20230911
  25. LASIX [Concomitant]
     Active Substance: FUROSEMIDE
     Indication: Malignant pleural effusion
     Dosage: 20 MG, QD
     Route: 048
     Dates: start: 20231023, end: 20240612
  26. BIOFERMIN [BIFIDOBACTERIUM BIFIDUM] [Concomitant]
     Indication: Product used for unknown indication
     Dosage: TID
     Route: 048
     Dates: start: 20231023, end: 20240613
  27. ALOXI [Concomitant]
     Active Substance: PALONOSETRON HYDROCHLORIDE
     Indication: Product used for unknown indication
     Dosage: 0.75 MG, QD
     Route: 041
     Dates: start: 20230728, end: 20240520
  28. DEXAMETHASONE SODIUM PHOSPHATE [Concomitant]
     Active Substance: DEXAMETHASONE PHOSPHATE\DEXAMETHASONE SODIUM PHOSPHATE
     Indication: Product used for unknown indication
     Dosage: 2 DF, QD
     Route: 041
     Dates: start: 20230728, end: 20240520
  29. DEXTROSE [Concomitant]
     Active Substance: DEXTROSE\DEXTROSE MONOHYDRATE
     Indication: Product used for unknown indication
     Dosage: 50 ML, QD
     Route: 041
     Dates: start: 20230728, end: 20240520
  30. DEXTROSE [Concomitant]
     Active Substance: DEXTROSE\DEXTROSE MONOHYDRATE
     Indication: Product used for unknown indication
     Dosage: 100 ML, QD
     Route: 041
     Dates: start: 20230728, end: 20240520
  31. HEPARIN SODIUM [Concomitant]
     Active Substance: HEPARIN SODIUM
     Indication: Product used for unknown indication
     Dosage: 1 ML, QD
     Dates: start: 20230728, end: 20240520
  32. SODIUM CHLORIDE [Concomitant]
     Active Substance: SODIUM CHLORIDE
     Indication: Product used for unknown indication
     Dosage: 9 ML, QD
     Route: 041
     Dates: start: 20230728, end: 20240520

REACTIONS (9)
  - Interstitial lung disease [Fatal]
  - Disease progression [Fatal]
  - Cellulitis [Recovering/Resolving]
  - Cough [Not Recovered/Not Resolved]
  - Decreased appetite [Recovering/Resolving]
  - Decreased appetite [Recovering/Resolving]
  - Oedema peripheral [Not Recovered/Not Resolved]
  - Radiation skin injury [Recovering/Resolving]
  - Hepatic function abnormal [Recovering/Resolving]

NARRATIVE: CASE EVENT DATE: 20230730
